FAERS Safety Report 6996204-4 (Version None)
Quarter: 2010Q3

REPORT INFORMATION
  Report Type: 
  Country: None (occurrence: None)
  Receive Date: 20100918
  Receipt Date: 20090421
  Transmission Date: 20110219
  Serious: No
  Sender: FDA-Public Use
  Company Number: US-WYE-H07398208

PATIENT
  Sex: Female

DRUGS (4)
  1. EFFEXOR XR [Suspect]
     Route: 048
  2. SEROQUEL [Concomitant]
  3. BUSPAR [Concomitant]
  4. TRAZODONE HCL [Concomitant]

REACTIONS (1)
  - MEDICATION RESIDUE [None]
